FAERS Safety Report 6381132-8 (Version None)
Quarter: 2009Q3

REPORT INFORMATION
  Report Type: 
  Country: None (occurrence: None)
  Receive Date: 20090925
  Receipt Date: 20090925
  Transmission Date: 20100115
  Serious: Yes (Hospitalization)
  Sender: FDA-Public Use
  Company Number: None

PATIENT
  Age: 71 Year
  Sex: Male
  Weight: 71 kg

DRUGS (1)
  1. SIROLIMUS 2 MG WYETH [Suspect]
     Indication: PROPHYLAXIS AGAINST TRANSPLANT REJECTION
     Dosage: 2 MG ONCE A DAY PO
     Route: 048
     Dates: start: 20090401, end: 20090922

REACTIONS (3)
  - ORGANISING PNEUMONIA [None]
  - PULMONARY TOXICITY [None]
  - TREATMENT FAILURE [None]
